FAERS Safety Report 21027846 (Version 1)
Quarter: 2022Q2

REPORT INFORMATION
  Report Type: Report from Study
  Country: US (occurrence: US)
  Receive Date: 20220630
  Receipt Date: 20220630
  Transmission Date: 20220721
  Serious: Yes (Death, Hospitalization, Other)
  Sender: FDA-Public Use
  Company Number: US-JNJFOC-20220645892

PATIENT
  Age: 62 Year
  Sex: Female
  Weight: 64.7 kg

DRUGS (13)
  1. XARELTO [Suspect]
     Active Substance: RIVAROXABAN
     Indication: Thrombosis prophylaxis
     Route: 048
  2. CLOPIDOGREL [Suspect]
     Active Substance: CLOPIDOGREL BISULFATE
     Indication: Myocardial infarction
     Route: 048
  3. BOSUTINIB [Suspect]
     Active Substance: BOSUTINIB
     Indication: Chronic myeloid leukaemia
     Route: 048
     Dates: start: 20211217
  4. BOSUTINIB [Suspect]
     Active Substance: BOSUTINIB
     Route: 048
     Dates: end: 20220115
  5. BOSUTINIB [Suspect]
     Active Substance: BOSUTINIB
     Route: 048
     Dates: start: 20220201
  6. BOSUTINIB [Suspect]
     Active Substance: BOSUTINIB
     Route: 048
     Dates: start: 20220215, end: 20220524
  7. WARFARIN [Suspect]
     Active Substance: WARFARIN
     Indication: Myocardial infarction
     Route: 048
     Dates: end: 20220524
  8. ENALAPRIL MALEATE [Concomitant]
     Active Substance: ENALAPRIL MALEATE
     Indication: Myocardial infarction
  9. SPIRONOLACTONE [Concomitant]
     Active Substance: SPIRONOLACTONE
     Indication: Myocardial infarction
  10. LANSOPRAZOLE [Concomitant]
     Active Substance: LANSOPRAZOLE
     Indication: Gastritis prophylaxis
  11. SODIUM FERROUS CITRATE [Concomitant]
     Active Substance: SODIUM FERROUS CITRATE
     Indication: Iron deficiency anaemia
  12. CARVEDILOL [Concomitant]
     Active Substance: CARVEDILOL
     Indication: Hypertension
     Route: 048
  13. ROSUVASTATIN [Concomitant]
     Active Substance: ROSUVASTATIN
     Indication: Hyperlipidaemia
     Route: 048

REACTIONS (4)
  - Cerebral haemorrhage [Fatal]
  - Rash [Recovering/Resolving]
  - Epistaxis [Unknown]
  - Gingival bleeding [Unknown]

NARRATIVE: CASE EVENT DATE: 20220524
